FAERS Safety Report 17308304 (Version 1)
Quarter: 2020Q1

REPORT INFORMATION
  Report Type: Spontaneous
  Country: US (occurrence: US)
  Receive Date: 20200123
  Receipt Date: 20200123
  Transmission Date: 20200409
  Serious: No
  Sender: FDA-Public Use
  Company Number: None

PATIENT
  Age: 40 Year
  Sex: Female
  Weight: 114.75 kg

DRUGS (6)
  1. TOPIRAMATE. [Suspect]
     Active Substance: TOPIRAMATE
     Dosage: ?          QUANTITY:5 TABLET(S);OTHER FREQUENCY:1 AT BED X 1 WEEK;?
     Route: 048
     Dates: start: 20200107, end: 20200117
  2. ANTIDEPRESSANTS [Concomitant]
     Active Substance: UNSPECIFIED INGREDIENT
  3. INSULIN [Concomitant]
     Active Substance: INSULIN NOS
  4. MELOXICAM. [Concomitant]
     Active Substance: MELOXICAM
  5. VITAMIN D [Concomitant]
     Active Substance: VITAMIN D NOS
  6. ADDERALL [Concomitant]
     Active Substance: AMPHETAMINE ASPARTATE\AMPHETAMINE SULFATE\DEXTROAMPHETAMINE SACCHARATE\DEXTROAMPHETAMINE SULFATE

REACTIONS (5)
  - Glossodynia [None]
  - Tongue discomfort [None]
  - Oral pain [None]
  - Plicated tongue [None]
  - Tongue discolouration [None]

NARRATIVE: CASE EVENT DATE: 20200108
